FAERS Safety Report 22020864 (Version 1)
Quarter: 2023Q1

REPORT INFORMATION
  Report Type: Spontaneous
  Country: JP (occurrence: None)
  Receive Date: 20230222
  Receipt Date: 20230222
  Transmission Date: 20230418
  Serious: Yes (Other)
  Sender: FDA-Public Use
  Company Number: 2023A037682

PATIENT
  Age: 67 Year
  Sex: Male

DRUGS (1)
  1. OLAPARIB [Suspect]
     Active Substance: OLAPARIB
     Indication: Neuroendocrine carcinoma of prostate
     Route: 048

REACTIONS (1)
  - Interstitial lung disease [Recovering/Resolving]
